FAERS Safety Report 10096235 (Version 1)
Quarter: 2014Q2

REPORT INFORMATION
  Report Type: Spontaneous
  Country: US (occurrence: US)
  Receive Date: 20140422
  Receipt Date: 20140422
  Transmission Date: 20141212
  Serious: No
  Sender: FDA-Public Use
  Company Number: US-009507513-1404USA002609

PATIENT
  Sex: Female

DRUGS (4)
  1. CLARITIN ORAL SOLUTION [Suspect]
     Indication: SEASONAL ALLERGY
     Dosage: UNK UNK, HS
     Route: 048
  2. CLARITIN ORAL SOLUTION [Suspect]
     Indication: COUGH
  3. CLARITIN ORAL SOLUTION [Suspect]
     Indication: RETCHING
  4. CLARITIN ORAL SOLUTION [Suspect]
     Indication: RHINORRHOEA

REACTIONS (1)
  - Drug ineffective for unapproved indication [Unknown]
